FAERS Safety Report 20302886 (Version 2)
Quarter: 2022Q1

REPORT INFORMATION
  Report Type: Report from Study
  Country: UG (occurrence: None)
  Receive Date: 20220106
  Receipt Date: 20220329
  Transmission Date: 20220423
  Serious: Yes (Death, Hospitalization)
  Sender: FDA-Public Use
  Company Number: UG-ROCHE-2995883

PATIENT
  Age: 50 Year
  Sex: Female
  Weight: 63 kg

DRUGS (21)
  1. RITUXIMAB [Suspect]
     Active Substance: RITUXIMAB
     Indication: Burkitt^s lymphoma
     Route: 065
  2. ACYCLOVIR [Concomitant]
     Active Substance: ACYCLOVIR
     Route: 048
     Dates: start: 20211124, end: 20211223
  3. OMEPRAZOLE [Concomitant]
     Active Substance: OMEPRAZOLE
     Route: 048
     Dates: start: 20211124, end: 20211209
  4. ACETAMINOPHEN [Concomitant]
     Active Substance: ACETAMINOPHEN
     Dosage: STAT
     Route: 042
  5. ACETAMINOPHEN [Concomitant]
     Active Substance: ACETAMINOPHEN
     Route: 048
     Dates: start: 20211215, end: 20211218
  6. RABEPRAZOLE [Concomitant]
     Active Substance: RABEPRAZOLE
     Dosage: STAT
     Route: 042
     Dates: start: 20211215
  7. FLUCONAZOLE [Concomitant]
     Active Substance: FLUCONAZOLE
     Route: 048
     Dates: start: 20211123, end: 20211130
  8. FLUCONAZOLE [Concomitant]
     Active Substance: FLUCONAZOLE
     Route: 048
     Dates: start: 20211229
  9. DEXAMETHASONE [Concomitant]
     Active Substance: DEXAMETHASONE
     Route: 042
     Dates: start: 20211117, end: 20211121
  10. DEXAMETHASONE [Concomitant]
     Active Substance: DEXAMETHASONE
     Dosage: STAT
     Route: 042
     Dates: start: 20211223
  11. DEXAMETHASONE [Concomitant]
     Active Substance: DEXAMETHASONE
     Route: 042
     Dates: start: 20211224, end: 20211226
  12. DEXAMETHASONE [Concomitant]
     Active Substance: DEXAMETHASONE
     Dosage: STAT
     Route: 042
     Dates: start: 20211226
  13. DEXAMETHASONE [Concomitant]
     Active Substance: DEXAMETHASONE
     Route: 042
     Dates: start: 20211227, end: 20211229
  14. FEBUXOSTAT [Concomitant]
     Active Substance: FEBUXOSTAT
     Route: 048
     Dates: start: 20211117, end: 20211124
  15. FEBUXOSTAT [Concomitant]
     Active Substance: FEBUXOSTAT
     Route: 048
     Dates: start: 20211124, end: 20211208
  16. ONDANSETRON [Concomitant]
     Active Substance: ONDANSETRON
     Route: 048
     Dates: start: 20211125, end: 20211129
  17. ONDANSETRON [Concomitant]
     Active Substance: ONDANSETRON
     Dosage: STAT
     Route: 042
  18. LEVOFLOXACIN [Concomitant]
     Active Substance: LEVOFLOXACIN
     Route: 048
     Dates: start: 20211215, end: 20211222
  19. NEULASTA [Concomitant]
     Active Substance: PEGFILGRASTIM
     Dosage: STAT
     Route: 058
     Dates: start: 20211224
  20. DOLUTEGRAVIR;LAMIVUDINE;TENOFOVIR [Concomitant]
     Dosage: 300MG/300MG/50MG
     Route: 048
     Dates: start: 2020, end: 20211229
  21. LACTULOSE [Concomitant]
     Active Substance: LACTULOSE
     Dates: start: 20211226, end: 20211227

REACTIONS (7)
  - Dyspnoea [Unknown]
  - Cough [Unknown]
  - Abdominal distension [Unknown]
  - Abdominal pain upper [Unknown]
  - Pollakiuria [Unknown]
  - Respiratory distress [Unknown]
  - Death [Fatal]

NARRATIVE: CASE EVENT DATE: 20211223
